FAERS Safety Report 10997218 (Version 1)
Quarter: 2015Q1

REPORT INFORMATION
  Report Type: Spontaneous
  Country: US (occurrence: None)
  Receive Date: 20150331
  Receipt Date: 20150331
  Transmission Date: 20150721
  Serious: Yes (Other)
  Sender: FDA-Public Use
  Company Number: PHEH2014US004071

PATIENT
  Sex: Female

DRUGS (6)
  1. SINEMET-CR (CARBIDOPA, LEVODOPA) [Concomitant]
  2. NAMENDA [Concomitant]
     Active Substance: MEMANTINE HYDROCHLORIDE
  3. ALENDRONATE SODIUM (ALENDRONATE SODIUM) (ALENDRONATE SODIUM) [Concomitant]
     Active Substance: ALENDRONATE SODIUM
  4. PLAVIX (CLOPIDOGREL BISULFATE) [Concomitant]
  5. VIT D3 (COLECALCIFEROL) [Concomitant]
  6. EXELON PATCH [Suspect]
     Active Substance: RIVASTIGMINE
     Dosage: 4.6 MG, UNK, TRANSDERMAL
     Route: 062

REACTIONS (1)
  - Hallucination [None]
